FAERS Safety Report 6765716-0 (Version None)
Quarter: 2010Q2

REPORT INFORMATION
  Report Type: 
  Country: None (occurrence: None)
  Receive Date: 20100611
  Receipt Date: 20100602
  Transmission Date: 20101027
  Serious: Yes (Hospitalization)
  Sender: FDA-Public Use
  Company Number: NO-JNJFOC-20100407257

PATIENT
  Age: 35 Year
  Sex: Female

DRUGS (6)
  1. REMICADE [Suspect]
     Indication: COLITIS ULCERATIVE
     Dosage: RECEIVED 2 INFUSIONS
     Route: 042
  2. REMICADE [Suspect]
     Dosage: RECEIVED 3 INFUSIONS
     Route: 042
  3. REMICADE [Suspect]
     Route: 042
  4. SOLU-CORTEF [Concomitant]
     Indication: PREMEDICATION
     Route: 042
  5. PHENERGAN [Concomitant]
     Indication: PREMEDICATION
     Route: 048
  6. IMUREL [Concomitant]
     Indication: COLITIS ULCERATIVE

REACTIONS (6)
  - ARTHRALGIA [None]
  - HEART RATE DECREASED [None]
  - HYPERSENSITIVITY [None]
  - INFUSION RELATED REACTION [None]
  - JOINT SWELLING [None]
  - TRISMUS [None]
